FAERS Safety Report 8638366 (Version 2)
Quarter: 2013Q1

REPORT INFORMATION
  Report Type: Spontaneous
  Country: US (occurrence: US)
  Receive Date: 20120627
  Receipt Date: 20130117
  Transmission Date: 20140127
  Serious: Yes (Other)
  Sender: FDA-Public Use
  Company Number: US-ROCHE-1079985

PATIENT
  Age: 23 Year
  Sex: Female
  Weight: 63.56 kg

DRUGS (1)
  1. ACCUTANE [Suspect]
     Indication: ACNE
     Dosage: 40 MG, 20 MG
     Route: 048
     Dates: start: 199401, end: 199501

REACTIONS (7)
  - Crohn^s disease [Unknown]
  - Inflammatory bowel disease [Unknown]
  - Depression [Not Recovered/Not Resolved]
  - Injury [Unknown]
  - Mental disorder [Unknown]
  - Lip dry [Unknown]
  - Irritable bowel syndrome [Unknown]
